FAERS Safety Report 7300965-4 (Version None)
Quarter: 2011Q1

REPORT INFORMATION
  Report Type: 
  Country: None (occurrence: None)
  Receive Date: 20110218
  Receipt Date: 20110207
  Transmission Date: 20110831
  Serious: Yes (Death, Hospitalization, Other)
  Sender: FDA-Public Use
  Company Number: US-BAXTER-2011BH002802

PATIENT
  Age: 88 Year
  Sex: Male

DRUGS (2)
  1. DIANEAL [Suspect]
     Indication: PERITONEAL DIALYSIS
     Route: 033
     Dates: end: 20101109
  2. DIGOXIN [Concomitant]
     Indication: PRODUCT USED FOR UNKNOWN INDICATION
     Route: 065

REACTIONS (6)
  - GASTROINTESTINAL INJURY [None]
  - SUBARACHNOID HAEMORRHAGE [None]
  - FALL [None]
  - CARDIAC DEATH [None]
  - HAEMOTHORAX [None]
  - ATRIAL FIBRILLATION [None]
